FAERS Safety Report 8301864-1 (Version None)
Quarter: 2012Q2

REPORT INFORMATION
  Report Type: 
  Country: None (occurrence: None)
  Receive Date: 20120417
  Receipt Date: 20120406
  Transmission Date: 20120825
  Serious: Yes (Other)
  Sender: FDA-Public Use
  Company Number: 20120211

PATIENT
  Age: 56 Year

DRUGS (1)
  1. DEXAMETHASONE SODIUM PHOSPHATE [Suspect]
     Indication: GOUT
     Dates: start: 20110501, end: 20110520

REACTIONS (10)
  - INJECTION SITE RASH [None]
  - JOINT SWELLING [None]
  - OEDEMA PERIPHERAL [None]
  - PRODUCT QUALITY ISSUE [None]
  - PAIN IN EXTREMITY [None]
  - INJECTION SITE PRURITUS [None]
  - SENSATION OF FOREIGN BODY [None]
  - PRODUCT CONTAMINATION [None]
  - ARTHRALGIA [None]
  - GRANULOMA [None]
